FAERS Safety Report 5493481-6 (Version None)
Quarter: 2007Q4

REPORT INFORMATION
  Report Type: 
  Country: None (occurrence: None)
  Receive Date: 20071019
  Receipt Date: 20071009
  Transmission Date: 20080405
  Serious: Yes (Other)
  Sender: FDA-Public Use
  Company Number: 2007-03399

PATIENT
  Age: 45 Year
  Sex: Female
  Weight: 64 kg

DRUGS (7)
  1. VELCADE [Suspect]
     Indication: MULTIPLE MYELOMA
     Dosage: 2.30 MG, INTRAVENOUS
     Route: 042
     Dates: start: 20070517, end: 20070528
  2. DEXAMETHASONE 0.5MG TAB [Concomitant]
  3. FAMOTIDINE [Concomitant]
  4. BAKTAR    (SULFAMETHOXAZOLE, TRIMETHOPRIM) [Concomitant]
  5. BIOFERMIN R  (STREPTOCOCCUS FAECALIS) [Concomitant]
  6. GLUMIN        (GLUTAMIC ACID) [Concomitant]
  7. GASLON      (IRSOGLADINE MALEATE) [Concomitant]

REACTIONS (4)
  - ALANINE AMINOTRANSFERASE INCREASED [None]
  - ANAEMIA [None]
  - ASPARTATE AMINOTRANSFERASE INCREASED [None]
  - HYPOAESTHESIA [None]
